FAERS Safety Report 5451910-8 (Version None)
Quarter: 2007Q3

REPORT INFORMATION
  Report Type: 
  Country: None (occurrence: None)
  Receive Date: 20070912
  Receipt Date: 20070827
  Transmission Date: 20080115
  Serious: Yes (Hospitalization)
  Sender: FDA-Public Use
  Company Number: DSA_30312_2007

PATIENT
  Age: 42 Year
  Sex: Female
  Weight: 52 kg

DRUGS (11)
  1. RENIVACE (RENIVACE - ENALAPRIL MALEATE) [Suspect]
     Indication: HYPERTENSION
     Dosage: (2.5 MG QD ORAL)
     Route: 048
     Dates: start: 20070608, end: 20070613
  2. ANPLAG [Concomitant]
  3. ASPIRIN [Concomitant]
  4. NU-LOTAN [Concomitant]
  5. DIART [Concomitant]
  6. JUVELA [Concomitant]
  7. LIPITOR [Concomitant]
  8. NEORAL [Concomitant]
  9. PREDONINE [Concomitant]
  10. PROCYLIN [Concomitant]
  11. LANSOPRAZOLE [Concomitant]

REACTIONS (5)
  - ABASIA [None]
  - C-REACTIVE PROTEIN INCREASED [None]
  - DRUG EFFECT DECREASED [None]
  - ERYTHEMA [None]
  - PAIN [None]
